FAERS Safety Report 9122094 (Version 1)
Quarter: 2013Q1

REPORT INFORMATION
  Report Type: Spontaneous
  Country: US (occurrence: None)
  Receive Date: 20130125
  Receipt Date: 20130125
  Transmission Date: 20140127
  Serious: No
  Sender: FDA-Public Use
  Company Number: 2012US-004424

PATIENT
  Age: 70 Year
  Sex: Female
  Weight: 74.5 kg

DRUGS (6)
  1. OMONTYS (PEGINESATIDE) SOLUTION FOR INJECTION [Suspect]
     Indication: NEPHROGENIC ANAEMIA
     Dates: start: 20120925, end: 20120925
  2. VENOFER [Suspect]
     Dates: start: 20120925
  3. HEPARIN (HEPARIN) [Concomitant]
  4. GENTAMICIN (GENTAMICIN) [Concomitant]
  5. HECTOROL (DOXERCALCIFEROL) [Concomitant]
  6. LIQUACEL [Concomitant]

REACTIONS (2)
  - Dizziness [None]
  - Hypoaesthesia [None]
